FAERS Safety Report 4335642-5 (Version None)
Quarter: 2004Q2

REPORT INFORMATION
  Report Type: 
  Country: None (occurrence: None)
  Receive Date: 20040409
  Receipt Date: 20040407
  Transmission Date: 20050107
  Serious: Yes (Disabling)
  Sender: FDA-Public Use
  Company Number: JP-ROCHE-363840

PATIENT
  Age: 58 Year
  Sex: Female

DRUGS (2)
  1. XELODA [Suspect]
     Indication: BREAST CANCER
     Route: 048
     Dates: start: 20030924, end: 20040403
  2. EXEMESTANE [Concomitant]
     Indication: BREAST CANCER
     Route: 048

REACTIONS (1)
  - NEUROPATHY PERIPHERAL [None]
